FAERS Safety Report 12340091 (Version 4)
Quarter: 2016Q3

REPORT INFORMATION
  Report Type: Spontaneous
  Country: US (occurrence: US)
  Receive Date: 20160506
  Receipt Date: 20160901
  Transmission Date: 20161109
  Serious: No
  Sender: FDA-Public Use
  Company Number: US-009507513-1605USA003241

PATIENT
  Age: 20 Year
  Sex: Female
  Weight: 63.49 kg

DRUGS (1)
  1. NEXPLANON [Suspect]
     Active Substance: ETONOGESTREL
     Dosage: 68 MG; 1 ROD FOR EVERY 3 YEARS
     Route: 059
     Dates: start: 201209

REACTIONS (4)
  - Incorrect drug administration duration [Unknown]
  - Device deployment issue [Unknown]
  - Implant site pain [Unknown]
  - Complication associated with device [Unknown]

NARRATIVE: CASE EVENT DATE: 201209
